FAERS Safety Report 25669687 (Version 2)
Quarter: 2025Q4

REPORT INFORMATION
  Report Type: Spontaneous
  Country: US (occurrence: US)
  Receive Date: 20250812
  Receipt Date: 20251116
  Transmission Date: 20260118
  Serious: No
  Sender: ASTELLAS
  Company Number: US-ASTELLAS-2025-AER-042682

PATIENT
  Sex: Female

DRUGS (1)
  1. VYLOY [Suspect]
     Active Substance: ZOLBETUXIMAB-CLZB
     Indication: Product used for unknown indication
     Route: 065

REACTIONS (1)
  - Vomiting [Unknown]
